FAERS Safety Report 15285462 (Version 1)
Quarter: 2018Q3

REPORT INFORMATION
  Report Type: Spontaneous
  Country: CH (occurrence: CH)
  Receive Date: 20180816
  Receipt Date: 20180816
  Transmission Date: 20181010
  Serious: Yes (Hospitalization)
  Sender: FDA-Public Use
  Company Number: -ASTRAZENECA-2018SF01205

PATIENT
  Age: 21335 Day
  Sex: Female
  Weight: 53.6 kg

DRUGS (1)
  1. IMFINZI [Suspect]
     Active Substance: DURVALUMAB
     Dosage: 1 DOSAGE FORM, DOSAGE NOT KNOWN, ADMINISTRATION EVERY 2 WEEKS
     Route: 041
     Dates: start: 20180629, end: 20180713

REACTIONS (3)
  - Pleural effusion [Recovering/Resolving]
  - Pleuropericarditis [Recovering/Resolving]
  - Pericardial effusion [Recovering/Resolving]

NARRATIVE: CASE EVENT DATE: 20180629
